FAERS Safety Report 8777005 (Version 1)
Quarter: 2012Q4

REPORT INFORMATION
  Report Type: 
  Country: IN (occurrence: IN)
  Receive Date: 20120911
  Receipt Date: 20120911
  Transmission Date: 20130627
  Serious: Yes (Death)
  Sender: FDA-Public Use
  Company Number: IN-GLAXOSMITHKLINE-B0829368A

PATIENT

DRUGS (1)
  1. TIMENTIN [Suspect]
     Indication: ABDOMINAL INFECTION
     Route: 065

REACTIONS (3)
  - Pancytopenia [Fatal]
  - Anaemia [Fatal]
  - Neutropenia [Fatal]
